FAERS Safety Report 5710867-2 (Version None)
Quarter: 2008Q2

REPORT INFORMATION
  Report Type: 
  Country: None (occurrence: None)
  Receive Date: 20080417
  Receipt Date: 20080417
  Transmission Date: 20081010
  Serious: No
  Sender: FDA-Public Use
  Company Number: None

PATIENT
  Sex: Female
  Weight: 30.9807 kg

DRUGS (12)
  1. AVASTIN [Suspect]
     Indication: ANGIOSARCOMA
     Dosage: 15 MG/KG/D EVERY 3 WEEKS IV BOLUS
     Route: 040
     Dates: start: 20080206, end: 20080324
  2. ASPIRIN [Concomitant]
  3. CARDIZEM [Concomitant]
  4. LISINOPRIL [Concomitant]
  5. IMDUR [Concomitant]
  6. DITROPAN [Concomitant]
  7. SYNTHROID [Concomitant]
  8. MINOCYCLINE HCL [Concomitant]
  9. LEXAPRO [Concomitant]
  10. REMERON [Concomitant]
  11. OXYCODONE HCL [Concomitant]
  12. PROTONIX [Concomitant]

REACTIONS (6)
  - CARDIAC FAILURE CONGESTIVE [None]
  - DEMENTIA [None]
  - DYSPNOEA [None]
  - FORCED EXPIRATORY VOLUME ABNORMAL [None]
  - HYPERTENSION [None]
  - PLEURAL EFFUSION [None]
